FAERS Safety Report 9940899 (Version 1)
Quarter: 2014Q1

REPORT INFORMATION
  Report Type: Spontaneous
  Country: CL (occurrence: CL)
  Receive Date: 20140303
  Receipt Date: 20140303
  Transmission Date: 20141002
  Serious: Yes (Other)
  Sender: FDA-Public Use
  Company Number: CL-PFIZER INC-2014058230

PATIENT
  Age: 83 Year
  Sex: Female

DRUGS (1)
  1. XALATAN [Suspect]
     Indication: GLAUCOMA
     Dosage: 1 DROP, 1XDAY
     Route: 047
     Dates: start: 2007, end: 201401

REACTIONS (3)
  - Cataract [Unknown]
  - Arrhythmia [Unknown]
  - Intraocular pressure increased [Unknown]
